FAERS Safety Report 15551893 (Version 1)
Quarter: 2018Q4

REPORT INFORMATION
  Report Type: Spontaneous
  Country: US (occurrence: US)
  Receive Date: 20181025
  Receipt Date: 20181025
  Transmission Date: 20190205
  Serious: No
  Sender: FDA-Public Use
  Company Number: US-ASTRAZENECA-2018SF24811

PATIENT
  Sex: Male
  Weight: 81.6 kg

DRUGS (8)
  1. DIGOXIN. [Concomitant]
     Active Substance: DIGOXIN
     Indication: HEART RATE IRREGULAR
     Route: 048
  2. TUDORZA PRESSAIR [Suspect]
     Active Substance: ACLIDINIUM BROMIDE
     Dosage: 400.0UG AS REQUIRED
     Route: 055
     Dates: start: 2018
  3. ASACHOL [Concomitant]
     Indication: COLITIS
     Route: 065
  4. VITAMIN C [Concomitant]
     Active Substance: ASCORBIC ACID
     Indication: NUTRITIONAL SUPPLEMENTATION
     Route: 048
  5. SYMBICORT [Suspect]
     Active Substance: BUDESONIDE\FORMOTEROL FUMARATE DIHYDRATE
     Indication: ASTHMA
     Dosage: 160/4.5 MCG 2 PUFFS TWICE PER DAY
     Route: 055
  6. TUMERIC [Concomitant]
     Active Substance: HERBALS\TURMERIC
     Dosage: UNKNOWN
     Route: 065
  7. TERAZO [Concomitant]
     Indication: PROSTATE CANCER
     Dosage: UNKNOWN
     Route: 065
  8. RENEDINE [Concomitant]
     Indication: ABDOMINAL DISCOMFORT
     Route: 065

REACTIONS (7)
  - Gastric disorder [Unknown]
  - Prostatic disorder [Unknown]
  - Dyspnoea [Unknown]
  - Colitis [Unknown]
  - Intentional product misuse [Unknown]
  - Heart rate irregular [Unknown]
  - Hypersensitivity [Not Recovered/Not Resolved]
